FAERS Safety Report 8595509-3 (Version None)
Quarter: 2012Q3

REPORT INFORMATION
  Report Type: 
  Country: None (occurrence: None)
  Receive Date: 20120815
  Receipt Date: 20120802
  Transmission Date: 20120928
  Serious: No
  Sender: FDA-Public Use
  Company Number: US-BAYER-2012-079150

PATIENT
  Age: 72 Year
  Sex: Female
  Weight: 95.238 kg

DRUGS (7)
  1. ALEVE (CAPLET) [Suspect]
     Dosage: 1 DF, PRN
     Route: 048
     Dates: start: 20120719, end: 20120731
  2. SIMVASTATIN [Concomitant]
  3. OMEPRAZOLE [Concomitant]
  4. FISH OIL [Concomitant]
  5. VITAMIN E [Concomitant]
  6. VITAMIN D [Concomitant]
  7. LEVOTHYROXINE SODIUM [Concomitant]

REACTIONS (5)
  - THROAT IRRITATION [None]
  - VOMITING [None]
  - PRURITUS [None]
  - CHILLS [None]
  - ERYTHEMA [None]
